FAERS Safety Report 4878159-1 (Version None)
Quarter: 2005Q4

REPORT INFORMATION
  Report Type: 
  Country: None (occurrence: None)
  Receive Date: 20051212
  Receipt Date: 20050912
  Transmission Date: 20060501
  Serious: Yes (Death, Hospitalization)
  Sender: FDA-Public Use
  Company Number: M03-341-057

PATIENT
  Age: 64 Year
  Sex: Female

DRUGS (1)
  1. VELCADE [Suspect]
     Indication: MULTIPLE MYELOMA
     Dosage: 2.14 MG, UNK, IV BOLUS
     Route: 040
     Dates: start: 20030721, end: 20030724

REACTIONS (2)
  - DISEASE PROGRESSION [None]
  - INTESTINAL OBSTRUCTION [None]
